FAERS Safety Report 4274599-2 (Version None)
Quarter: 2004Q1

REPORT INFORMATION
  Report Type: 
  Country: None (occurrence: None)
  Receive Date: 20040115
  Receipt Date: 20031231
  Transmission Date: 20041129
  Serious: Yes (Death)
  Sender: FDA-Public Use
  Company Number: FR_030902893

PATIENT
  Age: 35 Year
  Sex: Female

DRUGS (1)
  1. PROZAC [Suspect]
     Indication: MAJOR DEPRESSION
     Dosage: 20 MG/DAY
     Dates: start: 20030901

REACTIONS (3)
  - COMPLETED SUICIDE [None]
  - COMPLICATIONS OF MATERNAL EXPOSURE TO THERAPEUTIC DRUGS [None]
  - MEDICATION ERROR [None]
